FAERS Safety Report 22594923 (Version 4)
Quarter: 2024Q2

REPORT INFORMATION
  Report Type: Spontaneous
  Country: FR (occurrence: FR)
  Receive Date: 20230613
  Receipt Date: 20240405
  Transmission Date: 20240716
  Serious: Yes (Hospitalization, Disabling, Other)
  Sender: FDA-Public Use
  Company Number: FR-PFIZER INC-202300205105

PATIENT
  Age: 45 Year
  Sex: Female
  Weight: 62 kg

DRUGS (19)
  1. ENBREL [Suspect]
     Active Substance: ETANERCEPT
     Indication: Spondylitis
     Dosage: 50 MG, WEEKLY
     Route: 058
     Dates: start: 201506, end: 201508
  2. ENBREL [Suspect]
     Active Substance: ETANERCEPT
     Indication: HLA-B*1502 assay negative
     Dosage: UNK
     Route: 065
  3. HUMIRA [Suspect]
     Active Substance: ADALIMUMAB
     Indication: HLA-B*1502 assay negative
     Dosage: 40 MG FREQ:2 WK
     Route: 058
     Dates: start: 20150324, end: 201507
  4. NABUMETONE [Concomitant]
     Active Substance: NABUMETONE
     Dosage: UNK
     Route: 065
  5. ACETAMINOPHEN\OPIUM [Concomitant]
     Active Substance: ACETAMINOPHEN\OPIUM
     Indication: HLA-B*1502 assay negative
     Dosage: UNK (UP TO 6 CAPSULES PER DAY IN SPACED DOSES; FREQUENCY: TO RENEW EVERY 4- 6H IF NEEDED)
     Dates: start: 2015
  6. CIMZIA [Concomitant]
     Active Substance: CERTOLIZUMAB PEGOL
     Indication: HLA-B*1502 assay negative
     Dosage: 200 MG
     Route: 058
     Dates: start: 2015, end: 201511
  7. CIMZIA [Concomitant]
     Active Substance: CERTOLIZUMAB PEGOL
     Dosage: 400 MG (FREQ:2 WK;FORM STRENGTH: 200 MG)
     Route: 058
     Dates: start: 201504, end: 2015
  8. XYLOCAINE [Concomitant]
     Active Substance: LIDOCAINE HYDROCHLORIDE
     Indication: Product used for unknown indication
     Dosage: UNK (FREQUENCY: MORNING AND NIGHT)
     Route: 048
  9. BETAMETHASONE DIPROPIONATE\BETAMETHASONE SODIUM PHOSPHATE [Concomitant]
     Active Substance: BETAMETHASONE DIPROPIONATE\BETAMETHASONE SODIUM PHOSPHATE
     Dosage: UNK
     Route: 065
  10. ARAVA [Concomitant]
     Active Substance: LEFLUNOMIDE
     Dosage: UNK
     Route: 065
  11. SULINDAC [Concomitant]
     Active Substance: SULINDAC
     Dosage: UNK (FORM STRENGTH: 200 MG)
  12. REMICADE [Concomitant]
     Active Substance: INFLIXIMAB
     Indication: HLA-B*1502 assay negative
     Dosage: UNK
     Route: 042
  13. ESOMEPRAZOLE [Concomitant]
     Active Substance: ESOMEPRAZOLE
     Dosage: UNK (1 CAPSULE; FORM STRENGTH: 40 MG; MORNING)
     Route: 048
     Dates: start: 2015
  14. HYDROCORTISONE [Concomitant]
     Active Substance: HYDROCORTISONE
     Dosage: 10 MG (FREQ:.5 D)
  15. NAPROXEN [Concomitant]
     Active Substance: NAPROXEN
     Dosage: UNK (1 TO 2 SUPPOSITORIES PER DAY)
  16. EFFERALGAN [Concomitant]
     Active Substance: ACETAMINOPHEN
     Dosage: UNK (UP TO 4 TABLETS/DAY)
     Route: 065
  17. FLUOXETINE [Concomitant]
     Active Substance: FLUOXETINE HYDROCHLORIDE
     Dosage: UNK (FORM STRENGTH: 20 MG)
  18. Nifluril [Concomitant]
     Dosage: UNK (1 SUPPOSITORY AT NIGHT; FORM STRENGTH: 700 MG)
     Route: 065
  19. IXPRIM [Concomitant]
     Active Substance: ACETAMINOPHEN\TRAMADOL HYDROCHLORIDE
     Dosage: UNK, AS NEEDED ( IF NEEDED)
     Route: 065
     Dates: start: 2015

REACTIONS (105)
  - Appendicitis [Unknown]
  - Knee operation [Unknown]
  - Caesarean section [Unknown]
  - Tonsillectomy [Unknown]
  - Peptic ulcer [Unknown]
  - Systemic lupus erythematosus [Unknown]
  - Myelodysplastic syndrome [Unknown]
  - Scleroderma [Unknown]
  - Myelodysplastic syndrome [Not Recovered/Not Resolved]
  - Neck pain [Not Recovered/Not Resolved]
  - Arthralgia [Unknown]
  - Gastritis [Unknown]
  - Back pain [Not Recovered/Not Resolved]
  - Unevaluable event [Unknown]
  - Oedema [Unknown]
  - Gastrointestinal inflammation [Not Recovered/Not Resolved]
  - Intervertebral disc disorder [Unknown]
  - Kyphosis [Unknown]
  - Musculoskeletal chest pain [Unknown]
  - Unevaluable event [Unknown]
  - Sialoadenitis [Unknown]
  - Renal aplasia [Unknown]
  - Abdominal pain [Unknown]
  - Osteoarthritis [Not Recovered/Not Resolved]
  - Uveitis [Unknown]
  - Cervicobrachial syndrome [Not Recovered/Not Resolved]
  - Drug dependence [Unknown]
  - Fall [Unknown]
  - Myalgia [Unknown]
  - Back pain [Unknown]
  - Hand fracture [Unknown]
  - Psoriasis [Unknown]
  - Gastrointestinal ulcer [Unknown]
  - Unevaluable event [Unknown]
  - Intervertebral disc degeneration [Unknown]
  - Intervertebral disc protrusion [Unknown]
  - Adrenal insufficiency [Unknown]
  - Spinal pain [Not Recovered/Not Resolved]
  - Asthenia [Not Recovered/Not Resolved]
  - Atrophy [Unknown]
  - Pain [Unknown]
  - Arteriosclerosis coronary artery [Unknown]
  - Drug ineffective [Unknown]
  - Therapeutic product effect incomplete [Unknown]
  - Raynaud^s phenomenon [Not Recovered/Not Resolved]
  - Dyspepsia [Unknown]
  - COVID-19 [Unknown]
  - Macrocytosis [Unknown]
  - Xerosis [Unknown]
  - Sleep disorder [Unknown]
  - Peripheral swelling [Unknown]
  - Skin depigmentation [Unknown]
  - Irritable bowel syndrome [Unknown]
  - Middle insomnia [Unknown]
  - Vitamin B12 deficiency [Unknown]
  - Myalgia [Recovering/Resolving]
  - Functional gastrointestinal disorder [Unknown]
  - Anaemia [Recovering/Resolving]
  - Night sweats [Unknown]
  - Gastrointestinal disorder [Unknown]
  - Unevaluable event [Unknown]
  - Unevaluable event [Unknown]
  - Pain [Not Recovered/Not Resolved]
  - Dry mouth [Unknown]
  - Pelvic pain [Unknown]
  - Constipation [Unknown]
  - Spinal osteoarthritis [Unknown]
  - Psychiatric symptom [Unknown]
  - Photosensitivity reaction [Unknown]
  - Haemoglobin decreased [Unknown]
  - Muscular weakness [Unknown]
  - Musculoskeletal stiffness [Unknown]
  - Back pain [Not Recovered/Not Resolved]
  - Inflammation [Unknown]
  - Swelling [Unknown]
  - Nausea [Unknown]
  - Discomfort [Unknown]
  - Dry eye [Unknown]
  - Fatigue [Not Recovered/Not Resolved]
  - Gastrooesophageal reflux disease [Unknown]
  - Disturbance in attention [Unknown]
  - Sacral pain [Unknown]
  - Hypotension [Unknown]
  - Weight decreased [Not Recovered/Not Resolved]
  - Telangiectasia [Unknown]
  - Gingival bleeding [Unknown]
  - Inflammatory pain [Not Recovered/Not Resolved]
  - Oral candidiasis [Unknown]
  - Vomiting [Unknown]
  - Vitamin B complex deficiency [Unknown]
  - Osteoarthritis [Not Recovered/Not Resolved]
  - Unevaluable event [Unknown]
  - Adrenocorticotropic hormone deficiency [Unknown]
  - Psychomotor retardation [Unknown]
  - Bone pain [Unknown]
  - Impaired quality of life [Unknown]
  - Pain in extremity [Unknown]
  - Arthralgia [Unknown]
  - Livedo reticularis [Unknown]
  - Folate deficiency [Unknown]
  - Musculoskeletal discomfort [Unknown]
  - Anaemia macrocytic [Unknown]
  - Sciatica [Unknown]
  - Cough [Unknown]
  - Neuralgia [Unknown]

NARRATIVE: CASE EVENT DATE: 20150101
